FAERS Safety Report 14182631 (Version 1)
Quarter: 2017Q4

REPORT INFORMATION
  Report Type: Spontaneous
  Country: US (occurrence: US)
  Receive Date: 20171113
  Receipt Date: 20171113
  Transmission Date: 20180321
  Serious: No
  Sender: FDA-Public Use
  Company Number: US-TRIS PHARMA, INC-2017TRISPO00475

PATIENT

DRUGS (2)
  1. DYANAVEL XR [Suspect]
     Active Substance: AMPHETAMINE
     Indication: ATTENTION DEFICIT/HYPERACTIVITY DISORDER
     Dosage: 2.5 MG, QD
     Route: 065
     Dates: start: 201701, end: 201709
  2. DYANAVEL XR [Suspect]
     Active Substance: AMPHETAMINE
     Dosage: 5 MG, QD
     Route: 065
     Dates: start: 201709, end: 20171027

REACTIONS (1)
  - Erection increased [Unknown]
